FAERS Safety Report 7641870-3 (Version None)
Quarter: 2011Q3

REPORT INFORMATION
  Report Type: 
  Country: None (occurrence: None)
  Receive Date: 20110728
  Receipt Date: 20110722
  Transmission Date: 20111222
  Serious: Yes (Hospitalization)
  Sender: FDA-Public Use
  Company Number: NL-BAXTER-2011BH024161

PATIENT
  Age: 54 Year
  Sex: Female

DRUGS (6)
  1. CISPLATIN [Suspect]
     Indication: EWING'S SARCOMA
     Route: 065
  2. ETOPOSIDE [Suspect]
     Indication: NON-HODGKIN'S LYMPHOMA
     Route: 065
  3. ETOPOSIDE [Suspect]
     Indication: EWING'S SARCOMA
     Route: 065
  4. IFOSFAMIDE [Suspect]
     Indication: NON-HODGKIN'S LYMPHOMA
     Route: 065
  5. CISPLATIN [Suspect]
     Indication: NON-HODGKIN'S LYMPHOMA
     Route: 065
  6. IFOSFAMIDE [Suspect]
     Indication: EWING'S SARCOMA
     Route: 065

REACTIONS (3)
  - PYREXIA [None]
  - PNEUMONIA [None]
  - NEUROPATHY PERIPHERAL [None]
